FAERS Safety Report 9490398 (Version 2)
Quarter: 2013Q3

REPORT INFORMATION
  Report Type: Spontaneous
  Country: US (occurrence: JP)
  Receive Date: 20130830
  Receipt Date: 20130830
  Transmission Date: 20140515
  Serious: Yes (Death)
  Sender: FDA-Public Use
  Company Number: JP-BRISTOL-MYERS SQUIBB COMPANY-19180934

PATIENT
  Sex: Male

DRUGS (1)
  1. ABILIFY [Suspect]
     Dates: start: 20130722

REACTIONS (3)
  - Convulsion [Fatal]
  - Respiratory failure [Fatal]
  - Cardiac arrest [Fatal]
